FAERS Safety Report 4416692-7 (Version None)
Quarter: 2004Q3

REPORT INFORMATION
  Report Type: 
  Country: None (occurrence: None)
  Receive Date: 20040802
  Receipt Date: 20040729
  Transmission Date: 20050211
  Serious: Yes (Other)
  Sender: FDA-Public Use
  Company Number: KII-2001-0011281

PATIENT
  Sex: Female

DRUGS (2)
  1. OXYCONTIN [Suspect]
  2. PROMETHAZINE [Suspect]

REACTIONS (4)
  - DRUG ADDICT [None]
  - DRUG WITHDRAWAL SYNDROME [None]
  - MYOCARDIAL INFARCTION [None]
  - POLYSUBSTANCE ABUSE [None]
